FAERS Safety Report 25503072 (Version 4)
Quarter: 2025Q3

REPORT INFORMATION
  Report Type: Report from Study
  Country: US (occurrence: US)
  Receive Date: 20250702
  Receipt Date: 20250930
  Transmission Date: 20251021
  Serious: Yes (Hospitalization, Other)
  Sender: SUNOVION
  Company Number: US-SMPA-2025SPA007221AA

PATIENT
  Age: 68 Year
  Sex: Male

DRUGS (33)
  1. ORGOVYX [Suspect]
     Active Substance: RELUGOLIX
     Indication: Prostate cancer
     Dosage: 120 MG, QD
     Route: 048
     Dates: start: 20250502
  2. ISOSORBIDE DINITRATE [Concomitant]
     Active Substance: ISOSORBIDE DINITRATE
  3. METOPROLOL SUCCINATE [Concomitant]
     Active Substance: METOPROLOL SUCCINATE
  4. NITROGLYCERIN [Concomitant]
     Active Substance: NITROGLYCERIN
     Route: 060
  5. OXYCODONE AND ACETAMINOPHEN [Concomitant]
     Active Substance: ACETAMINOPHEN\OXYCODONE HYDROCHLORIDE
  6. PLAVIX [Concomitant]
     Active Substance: CLOPIDOGREL BISULFATE
  7. PRIMIDONE [Concomitant]
     Active Substance: PRIMIDONE
  8. PROTONIX [Concomitant]
     Active Substance: PANTOPRAZOLE SODIUM
  9. ROPINIROLE [Concomitant]
     Active Substance: ROPINIROLE
  10. ROSUVASTATIN [Concomitant]
     Active Substance: ROSUVASTATIN
  11. SYNTHROID [Concomitant]
     Active Substance: LEVOTHYROXINE SODIUM
  12. TUMS [Concomitant]
     Active Substance: CALCIUM CARBONATE
  13. ZETIA [Concomitant]
     Active Substance: EZETIMIBE
  14. ZOFRAN [Concomitant]
     Active Substance: ONDANSETRON HYDROCHLORIDE
  15. AMLODIPINE [Concomitant]
     Active Substance: AMLODIPINE BESYLATE
  16. BUPIVACAINE [Concomitant]
     Active Substance: BUPIVACAINE
  17. BUPROPION [Concomitant]
     Active Substance: BUPROPION
  18. CYTOMEL [Concomitant]
     Active Substance: LIOTHYRONINE SODIUM
  19. FLOMAX [Concomitant]
     Active Substance: TAMSULOSIN HYDROCHLORIDE
  20. HYDROMORPHONE [Concomitant]
     Active Substance: HYDROMORPHONE
  21. PAIN RELIEF NOS [Concomitant]
     Active Substance: UNSPECIFIED INGREDIENT
  22. CHANTIX [Concomitant]
     Active Substance: VARENICLINE TARTRATE
  23. DIAZEPAM [Concomitant]
     Active Substance: DIAZEPAM
  24. GABAPENTIN [Concomitant]
     Active Substance: GABAPENTIN
  25. SERTRALINE HYDROCHLORIDE [Concomitant]
     Active Substance: SERTRALINE HYDROCHLORIDE
  26. SUCRALFATE [Concomitant]
     Active Substance: SUCRALFATE
  27. ALBUTEROL [Concomitant]
     Active Substance: ALBUTEROL
  28. CEFUROXIME AXETIL [Concomitant]
     Active Substance: CEFUROXIME AXETIL
  29. GUAIFENESIN [Concomitant]
     Active Substance: GUAIFENESIN
  30. PREDNISONE [Concomitant]
     Active Substance: PREDNISONE
  31. TIZANIDINE [Concomitant]
     Active Substance: TIZANIDINE
  32. PERCOCET [Concomitant]
     Active Substance: ACETAMINOPHEN\OXYCODONE HYDROCHLORIDE
  33. TORSEMIDE [Concomitant]
     Active Substance: TORSEMIDE

REACTIONS (8)
  - Pneumonia [Recovered/Resolved]
  - Pneumonia [Unknown]
  - Chronic obstructive pulmonary disease [Unknown]
  - Cardiac disorder [Unknown]
  - Pain [Unknown]
  - Hot flush [Unknown]
  - Fatigue [Unknown]
  - Incorrect dose administered [Recovered/Resolved]
